FAERS Safety Report 14589940 (Version 4)
Quarter: 2018Q2

REPORT INFORMATION
  Report Type: Report from Study
  Country: AT (occurrence: AT)
  Receive Date: 20180302
  Receipt Date: 20180509
  Transmission Date: 20180711
  Serious: Yes (Death, Other)
  Sender: FDA-Public Use
  Company Number: AT-ROCHE-2080840

PATIENT
  Sex: Female

DRUGS (12)
  1. INFLIXIMAB [Suspect]
     Active Substance: INFLIXIMAB
     Indication: EPSTEIN-BARR VIRUS INFECTION
  2. CIDOFOVIR. [Suspect]
     Active Substance: CIDOFOVIR
     Indication: EPSTEIN-BARR VIRUS INFECTION
  3. IMMUNOGLOBULIN IV [Suspect]
     Active Substance: HUMAN IMMUNOGLOBULIN G
     Indication: EPSTEIN-BARR VIRUS INFECTION
  4. DEXAMETHASONE. [Suspect]
     Active Substance: DEXAMETHASONE
     Indication: EPSTEIN-BARR VIRUS INFECTION
  5. RITUXIMAB. [Suspect]
     Active Substance: RITUXIMAB
     Indication: EPSTEIN-BARR VIRUS INFECTION
  6. IMMUNOGLOBULIN IV [Suspect]
     Active Substance: HUMAN IMMUNOGLOBULIN G
     Indication: HISTIOCYTOSIS HAEMATOPHAGIC
     Route: 042
  7. DEXAMETHASONE. [Suspect]
     Active Substance: DEXAMETHASONE
     Indication: HISTIOCYTOSIS HAEMATOPHAGIC
     Route: 065
     Dates: start: 2008
  8. RITUXIMAB. [Suspect]
     Active Substance: RITUXIMAB
     Indication: HISTIOCYTOSIS HAEMATOPHAGIC
     Route: 065
  9. FOSCAVIR [Suspect]
     Active Substance: FOSCARNET SODIUM
     Indication: EPSTEIN-BARR VIRUS INFECTION
  10. CIDOFOVIR. [Suspect]
     Active Substance: CIDOFOVIR
     Indication: HISTIOCYTOSIS HAEMATOPHAGIC
     Route: 065
  11. INFLIXIMAB [Suspect]
     Active Substance: INFLIXIMAB
     Indication: HISTIOCYTOSIS HAEMATOPHAGIC
     Route: 065
     Dates: start: 2008
  12. FOSCAVIR [Suspect]
     Active Substance: FOSCARNET SODIUM
     Indication: HISTIOCYTOSIS HAEMATOPHAGIC
     Route: 065

REACTIONS (4)
  - Intentional product use issue [Fatal]
  - Histiocytosis haematophagic [Unknown]
  - Epstein-Barr virus infection [Unknown]
  - Multiple organ dysfunction syndrome [Fatal]
